FAERS Safety Report 9105788 (Version 3)
Quarter: 2013Q3

REPORT INFORMATION
  Report Type: Spontaneous
  Country: US (occurrence: US)
  Receive Date: 20130221
  Receipt Date: 20130830
  Transmission Date: 20140515
  Serious: Yes (Death, Hospitalization)
  Sender: FDA-Public Use
  Company Number: US-B.I. PHARMACEUTICALS,INC./RIDGEFIELD-2013-BI-04307BP

PATIENT
  Age: 73 Year
  Sex: Male
  Weight: 63.96 kg

DRUGS (10)
  1. PRADAXA [Suspect]
     Indication: ATRIAL FIBRILLATION
     Dosage: 300 MG
     Dates: start: 20101215, end: 20110115
  2. ECOTRIN [Concomitant]
  3. DIGOXIN [Concomitant]
     Dosage: 0.125 MG
  4. INSPRA [Concomitant]
     Dosage: 25 MG
  5. FOLIC ACID [Concomitant]
  6. LASIX [Concomitant]
     Dosage: 40 MG
  7. LISINOPRIL [Concomitant]
     Dosage: 1.25 MG
  8. METHOTREXATE [Concomitant]
     Indication: RHEUMATOID ARTHRITIS
  9. LOPRESSOR [Concomitant]
     Indication: CARDIAC FAILURE CONGESTIVE
     Dosage: 12.5 MG
  10. LOPRESSOR [Concomitant]
     Indication: EJECTION FRACTION DECREASED

REACTIONS (2)
  - Cardiomyopathy [Fatal]
  - Gastrointestinal haemorrhage [Recovered/Resolved]
